FAERS Safety Report 21559999 (Version 1)
Quarter: 2022Q4

REPORT INFORMATION
  Report Type: Spontaneous
  Country: JP (occurrence: JP)
  Receive Date: 20221107
  Receipt Date: 20221107
  Transmission Date: 20230112
  Serious: Yes (Other)
  Sender: FDA-Public Use
  Company Number: JP-GILEAD-2022-0603440

PATIENT

DRUGS (3)
  1. VEKLURY [Suspect]
     Active Substance: REMDESIVIR
     Indication: COVID-19
     Dosage: UNK
     Route: 065
  2. DEXAMETHASONE [Concomitant]
     Active Substance: DEXAMETHASONE
     Indication: COVID-19
  3. BARICITINIB [Concomitant]
     Active Substance: BARICITINIB
     Indication: COVID-19

REACTIONS (2)
  - Pneumonia bacterial [Recovering/Resolving]
  - Acute respiratory distress syndrome [Not Recovered/Not Resolved]
